FAERS Safety Report 4801703-7 (Version None)
Quarter: 2005Q4

REPORT INFORMATION
  Report Type: 
  Country: None (occurrence: None)
  Receive Date: 20051018
  Receipt Date: 20051012
  Transmission Date: 20060501
  Serious: Yes (Hospitalization)
  Sender: FDA-Public Use
  Company Number: SE-GLAXOSMITHKLINE-B0397285A

PATIENT
  Age: 49 Year
  Sex: Male

DRUGS (5)
  1. ZINACEF [Suspect]
     Indication: INFLAMMATION
     Dosage: 3U PER DAY
     Route: 042
     Dates: start: 20050509, end: 20050513
  2. DICLOFENAC [Suspect]
     Dosage: 150MG PER DAY
     Route: 048
     Dates: start: 20050501, end: 20050501
  3. ALVEDON [Suspect]
     Dosage: 3G PER DAY
     Route: 048
     Dates: start: 20050501, end: 20050501
  4. CEFAMOX [Suspect]
     Indication: INFLAMMATION
     Dates: start: 20050501, end: 20050501
  5. NEXIUM [Suspect]
     Dosage: 20MG PER DAY
     Route: 048
     Dates: start: 20050509, end: 20050519

REACTIONS (6)
  - ALANINE AMINOTRANSFERASE INCREASED [None]
  - ASPARTATE AMINOTRANSFERASE INCREASED [None]
  - BLOOD ALKALINE PHOSPHATASE INCREASED [None]
  - BLOOD BILIRUBIN INCREASED [None]
  - CHOLESTASIS [None]
  - JAUNDICE [None]
